FAERS Safety Report 22653252 (Version 1)
Quarter: 2023Q2

REPORT INFORMATION
  Report Type: Other
  Country: US (occurrence: None)
  Receive Date: 20230629
  Receipt Date: 20230629
  Transmission Date: 20230722
  Serious: Yes (Hospitalization, Other)
  Sender: FDA-Public Use
  Company Number: US-ROCHE-3377687

PATIENT
  Sex: Female

DRUGS (2)
  1. AVASTIN [Suspect]
     Active Substance: BEVACIZUMAB
     Indication: Diabetic retinal oedema
     Route: 065
  2. AVASTIN [Suspect]
     Active Substance: BEVACIZUMAB
     Indication: Age-related macular degeneration

REACTIONS (11)
  - Off label use [Unknown]
  - COVID-19 [Unknown]
  - Thrombosis [Unknown]
  - Muscular weakness [Unknown]
  - Urticaria [Unknown]
  - Cataract [Unknown]
  - Paralysis [Unknown]
  - Neuropathy peripheral [Unknown]
  - Glycosylated haemoglobin decreased [Unknown]
  - Stress [Unknown]
  - Pain [Unknown]
